FAERS Safety Report 9486362 (Version 3)
Quarter: 2013Q4

REPORT INFORMATION
  Report Type: Spontaneous
  Country: US (occurrence: US)
  Receive Date: 20130829
  Receipt Date: 20131014
  Transmission Date: 20140711
  Serious: No
  Sender: FDA-Public Use
  Company Number: US-PFIZER INC-2013248117

PATIENT
  Age: 50 Year
  Sex: Female

DRUGS (4)
  1. LYRICA [Suspect]
     Indication: FIBROMYALGIA
     Dosage: 150 MG, 2X/DAY (TWICE DAILY)
     Route: 048
     Dates: start: 201304
  2. LYRICA [Suspect]
     Indication: NEURALGIA
  3. TOVIAZ [Suspect]
     Dosage: UNK
  4. CELEBREX [Suspect]
     Dosage: UNK

REACTIONS (5)
  - Stress [Unknown]
  - Crying [Unknown]
  - Malaise [Unknown]
  - Tearfulness [Unknown]
  - Depressed mood [Unknown]
